FAERS Safety Report 7386191-1 (Version None)
Quarter: 2011Q1

REPORT INFORMATION
  Report Type: 
  Country: None (occurrence: None)
  Receive Date: 20110323
  Receipt Date: 20110309
  Transmission Date: 20110831
  Serious: Yes (Other)
  Sender: FDA-Public Use
  Company Number: 2011SP011282

PATIENT
  Sex: Male

DRUGS (2)
  1. INTERFERON ALFA-2B RECOMBINANT (INTERFERON ALFA-2B) [Suspect]
     Indication: MYCOSIS FUNGOIDES
     Dosage: 3 MIU;TIW;SC
     Route: 058
  2. 8-METHOXYPSORALEN [Concomitant]

REACTIONS (3)
  - EJECTION FRACTION DECREASED [None]
  - CARDIOTOXICITY [None]
  - FATIGUE [None]
